FAERS Safety Report 4449016-X (Version None)
Quarter: 2004Q3

REPORT INFORMATION
  Report Type: 
  Country: None (occurrence: None)
  Receive Date: 20040909
  Receipt Date: 20040823
  Transmission Date: 20050211
  Serious: Yes (Hospitalization, Other)
  Sender: FDA-Public Use
  Company Number: USA040876263

PATIENT
  Age: 74 Year
  Sex: Female

DRUGS (1)
  1. FORTEO [Suspect]

REACTIONS (5)
  - FAILURE TO THRIVE [None]
  - FEEDING DISORDER [None]
  - PHARMACEUTICAL PRODUCT COMPLAINT [None]
  - SEPSIS [None]
  - URINARY TRACT INFECTION [None]
